FAERS Safety Report 4970311-X (Version None)
Quarter: 2006Q2

REPORT INFORMATION
  Report Type: 
  Country: None (occurrence: None)
  Receive Date: 20060412
  Receipt Date: 20060105
  Transmission Date: 20061013
  Serious: Yes (Hospitalization)
  Sender: FDA-Public Use
  Company Number: 2006CG00039

PATIENT
  Age: 37 Year
  Sex: Female
  Weight: 71 kg

DRUGS (4)
  1. NEXIUM [Suspect]
     Route: 048
     Dates: start: 20051006, end: 20051117
  2. TARDYFERON [Concomitant]
     Route: 048
  3. SPECIAFOLDINE [Concomitant]
     Route: 048
  4. DIGOXIN [Concomitant]
     Route: 048

REACTIONS (4)
  - HAEMOGLOBIN DECREASED [None]
  - HEART VALVE REPLACEMENT [None]
  - INTERNATIONAL NORMALISED RATIO INCREASED [None]
  - NEUTROPENIA [None]
